FAERS Safety Report 10248792 (Version 2)
Quarter: 2014Q2

REPORT INFORMATION
  Report Type: Report from Study
  Country: GB (occurrence: GB)
  Receive Date: 20140620
  Receipt Date: 20140620
  Transmission Date: 20141212
  Serious: Yes (Disabling)
  Sender: FDA-Public Use
  Company Number: GB-JNJFOC-20140402249

PATIENT
  Age: 43 Year
  Sex: Male
  Weight: 75 kg

DRUGS (2)
  1. STELARA [Suspect]
     Indication: PSORIASIS
     Route: 058
     Dates: start: 201303
  2. COAL TAR [Concomitant]
     Indication: PSORIASIS
     Route: 061

REACTIONS (3)
  - Erythema [Not Recovered/Not Resolved]
  - Psoriasis [Unknown]
  - Fatigue [Unknown]
